FAERS Safety Report 16167009 (Version 1)
Quarter: 2019Q2

REPORT INFORMATION
  Report Type: Report from Study
  Country: DE (occurrence: DE)
  Receive Date: 20190408
  Receipt Date: 20190408
  Transmission Date: 20190711
  Serious: Yes (Hospitalization, Other)
  Sender: FDA-Public Use
  Company Number: DE-ROCHE-2291209

PATIENT
  Age: 47 Year
  Sex: Male
  Weight: 96 kg

DRUGS (3)
  1. SANDIMMUN OPTORAL [Suspect]
     Active Substance: CYCLOSPORINE
     Indication: RENAL TRANSPLANT
     Dosage: 425MG/DAY
     Route: 065
     Dates: start: 20011016
  2. CELLCEPT [Suspect]
     Active Substance: MYCOPHENOLATE MOFETIL\MYCOPHENOLATE MOFETIL HYDROCHLORIDE
     Indication: IMMUNOSUPPRESSION
     Dosage: 2000MG/DAY
     Route: 048
     Dates: start: 20011016
  3. DECORTIN [Suspect]
     Active Substance: PREDNISONE
     Indication: IMMUNOSUPPRESSION
     Dosage: 7.5MG/DAY
     Route: 065
     Dates: start: 20011016

REACTIONS (6)
  - Blood creatinine increased [Recovered/Resolved]
  - Pyrexia [Recovered/Resolved]
  - Pyelonephritis [Recovered/Resolved]
  - Urinary tract infection [Recovered/Resolved]
  - Hydrocele operation [Recovered/Resolved]
  - Leukocyturia [Recovered/Resolved]

NARRATIVE: CASE EVENT DATE: 20011220
